FAERS Safety Report 7415571-0 (Version None)
Quarter: 2011Q2

REPORT INFORMATION
  Report Type: 
  Country: None (occurrence: None)
  Receive Date: 20110414
  Receipt Date: 20110331
  Transmission Date: 20111010
  Serious: Yes (Other)
  Sender: FDA-Public Use
  Company Number: US-CELGENEUS-163-21880-11023196

PATIENT
  Sex: Female

DRUGS (3)
  1. DECADRON [Concomitant]
     Dosage: 20 MILLIGRAM
     Route: 051
     Dates: start: 20110322
  2. LOVENOX [Concomitant]
     Route: 058
  3. REVLIMID [Suspect]
     Indication: MULTIPLE MYELOMA
     Dosage: 5 MILLIGRAM
     Route: 048
     Dates: start: 20101101

REACTIONS (2)
  - OEDEMA PERIPHERAL [None]
  - AMYLOIDOSIS [None]
